FAERS Safety Report 5886772-8 (Version None)
Quarter: 2008Q3

REPORT INFORMATION
  Report Type: 
  Country: None (occurrence: None)
  Receive Date: 20080917
  Receipt Date: 20080730
  Transmission Date: 20090109
  Serious: Yes (Other)
  Sender: FDA-Public Use
  Company Number: US-JNJFOC-20080800325

PATIENT
  Sex: Female
  Weight: 70.76 kg

DRUGS (2)
  1. TOPAMAX [Suspect]
     Indication: CONVULSION
     Route: 048
  2. KLONOPIN [Concomitant]
     Indication: DRUG USE FOR UNKNOWN INDICATION

REACTIONS (3)
  - DRUG EXPOSURE DURING PREGNANCY [None]
  - HYPOTENSION [None]
  - THERAPEUTIC RESPONSE DECREASED [None]
